FAERS Safety Report 11294603 (Version 1)
Quarter: 2015Q2

REPORT INFORMATION
  Report Type: Spontaneous
  Country: US (occurrence: None)
  Receive Date: 20150623
  Receipt Date: 20150623
  Transmission Date: 20150821
  Serious: Yes (Other)
  Sender: FDA-Public Use
  Company Number: RB-67516-2014

PATIENT
  Sex: Male

DRUGS (1)
  1. MUCINEX DM [Suspect]
     Active Substance: DEXTROMETHORPHAN HYDROBROMIDE\GUAIFENESIN
     Indication: PRODUCT USED FOR UNKNOWN INDICATION

REACTIONS (10)
  - Depression [None]
  - Headache [None]
  - Drug abuse [None]
  - Somnolence [None]
  - Confusional state [None]
  - Nausea [None]
  - Abdominal pain upper [None]
  - Dizziness [None]
  - Rash pruritic [None]
  - Constipation [None]
